FAERS Safety Report 24553670 (Version 1)
Quarter: 2024Q4

REPORT INFORMATION
  Report Type: Spontaneous
  Country: US (occurrence: US)
  Receive Date: 20241028
  Receipt Date: 20241028
  Transmission Date: 20250114
  Serious: No
  Sender: STRIDES
  Company Number: US-STRIDES ARCOLAB LIMITED-2024SP011416

PATIENT
  Age: 1 Decade
  Sex: Male
  Weight: 12.9 kg

DRUGS (5)
  1. POTASSIUM CITRATE [Suspect]
     Active Substance: POTASSIUM CITRATE
     Indication: Hypercalciuria
     Dosage: UNK
     Route: 065
  2. TOPIRAMATE [Concomitant]
     Active Substance: TOPIRAMATE
     Indication: Epilepsy
     Dosage: UNK
     Route: 065
  3. CALCITONIN [Concomitant]
     Active Substance: CALCITONIN
     Indication: Hypercalcaemia
     Dosage: UNK, BID (4 UNITS/KG/DOSE)
     Route: 065
  4. CALCITONIN [Concomitant]
     Active Substance: CALCITONIN
     Dosage: UNK, EVERY 8 HOURS (DOSE INCREASED TO 6 UNITS/KG/DOSE)
     Route: 065
  5. PEDIALYTE [Concomitant]
     Active Substance: POTASSIUM CITRATE\SODIUM CITRATE\ZINC
     Indication: Dehydration
     Dosage: UNK
     Route: 065

REACTIONS (1)
  - Off label use [Unknown]
